FAERS Safety Report 6005000-6 (Version None)
Quarter: 2008Q4

REPORT INFORMATION
  Report Type: 
  Country: None (occurrence: None)
  Receive Date: 20081216
  Receipt Date: 20081027
  Transmission Date: 20090506
  Serious: No
  Sender: FDA-Public Use
  Company Number: US-BAUSCH-2008BL003360

PATIENT
  Age: 57 Year
  Sex: Male
  Weight: 63 kg

DRUGS (1)
  1. ALAWAY [Suspect]
     Indication: OCCUPATIONAL PROBLEM ENVIRONMENTAL
     Route: 047
     Dates: start: 20080723

REACTIONS (1)
  - RHINORRHOEA [None]
